FAERS Safety Report 15583264 (Version 1)
Quarter: 2018Q4

REPORT INFORMATION
  Report Type: Spontaneous
  Country: US (occurrence: US)
  Receive Date: 20181103
  Receipt Date: 20181103
  Transmission Date: 20190205
  Serious: No
  Sender: FDA-Public Use
  Company Number: US-TEVA-2018-US-970024

PATIENT
  Sex: Female

DRUGS (1)
  1. AVIANTAB [Suspect]
     Active Substance: ETHINYL ESTRADIOL\LEVONORGESTREL
     Dosage: FORM STRENGTH: LEVONORGESTREL 0.10 MG AND ETHINYL ESTRADIOL 0.02 MG
     Route: 065

REACTIONS (1)
  - Metrorrhagia [Unknown]
